FAERS Safety Report 4736178-X (Version None)
Quarter: 2005Q3

REPORT INFORMATION
  Report Type: 
  Country: None (occurrence: None)
  Receive Date: 20050806
  Receipt Date: 20050701
  Transmission Date: 20060218
  Serious: Yes (Hospitalization)
  Sender: FDA-Public Use
  Company Number: PHBS2005ZA09491

PATIENT
  Age: 11 Year
  Sex: Female

DRUGS (2)
  1. TEGRETOL [Suspect]
     Indication: EPILEPSY
     Dosage: 800 MG/DAY
     Dates: start: 20050505
  2. BILTRICIDE [Concomitant]
     Indication: EPILEPSY

REACTIONS (6)
  - DERMATITIS ACNEIFORM [None]
  - FOLLICULITIS [None]
  - HYPERKERATOSIS FOLLICULARIS ET PARAFOLLICULARIS [None]
  - RASH GENERALISED [None]
  - SEBORRHOEIC DERMATITIS [None]
  - STEVENS-JOHNSON SYNDROME [None]
